FAERS Safety Report 24669629 (Version 1)
Quarter: 2024Q4

REPORT INFORMATION
  Report Type: Spontaneous
  Country: BR (occurrence: BR)
  Receive Date: 20241127
  Receipt Date: 20241127
  Transmission Date: 20250115
  Serious: Yes (Other)
  Sender: GENMAB
  Company Number: BR-ABBVIE-6018765

PATIENT
  Age: 83 Year

DRUGS (1)
  1. EPCORITAMAB [Suspect]
     Active Substance: EPCORITAMAB
     Indication: Diffuse large B-cell lymphoma
     Dosage: UNK
     Route: 058
     Dates: start: 202405

REACTIONS (4)
  - Surgery [Unknown]
  - Anal abscess [Unknown]
  - Anal fistula [Unknown]
  - Pain [Recovering/Resolving]

NARRATIVE: CASE EVENT DATE: 20240101
